FAERS Safety Report 13836232 (Version 1)
Quarter: 2017Q3

REPORT INFORMATION
  Report Type: Spontaneous
  Country: FR (occurrence: FR)
  Receive Date: 20170804
  Receipt Date: 20170804
  Transmission Date: 20171127
  Serious: Yes (Hospitalization)
  Sender: FDA-Public Use
  Company Number: FR-PFIZER INC-2017337879

PATIENT
  Age: 48 Year
  Sex: Female

DRUGS (9)
  1. IMETH [Suspect]
     Active Substance: METHOTREXATE SODIUM
     Indication: PSORIATIC ARTHROPATHY
     Dosage: 10 MG, UNK
     Route: 065
     Dates: start: 20170604, end: 20170604
  2. COSENTYX [Suspect]
     Active Substance: SECUKINUMAB
     Indication: PSORIATIC ARTHROPATHY
     Dosage: 300 MG, DAILY
     Route: 058
     Dates: start: 200701, end: 20170507
  3. ACTISKENAN [Concomitant]
     Active Substance: MORPHINE SULFATE
     Dosage: UNK UNK, AS NEEDED, 1 OR 2 DOSAGE FORMS
     Route: 048
  4. ASPIRINE PROTECT [Concomitant]
     Active Substance: ASPIRIN
     Dosage: 100 MG, UNK (AT NOON)
     Route: 048
  5. FLUOXETINE HYDROCHLORIDE. [Suspect]
     Active Substance: FLUOXETINE HYDROCHLORIDE
     Indication: DEPRESSION
     Dosage: 20 MG, DAILY
     Route: 048
  6. SKENAN [Concomitant]
     Active Substance: MORPHINE SULFATE
     Dosage: 40 MG, UNK (MORNING AND EVENING)
     Route: 048
  7. BISOCE [Concomitant]
     Active Substance: BISOPROLOL
     Dosage: 3 MG, UNK (MORNING)
     Route: 048
  8. LEVONORGESTREL. [Concomitant]
     Active Substance: LEVONORGESTREL
     Dosage: INTRA-UTERINE CONTRACEPTIVE DEVICE (IUD) WITH LEVONORGESTREL
     Route: 065
  9. ATACAND [Suspect]
     Active Substance: CANDESARTAN CILEXETIL
     Dosage: 1 DF, DAILY (LONG-STANDING TREATMENT)
     Route: 048

REACTIONS (1)
  - Stress cardiomyopathy [Recovering/Resolving]

NARRATIVE: CASE EVENT DATE: 20170605
